FAERS Safety Report 12265343 (Version 1)
Quarter: 2016Q2

REPORT INFORMATION
  Report Type: Report from Study
  Country: FR (occurrence: FR)
  Receive Date: 20160413
  Receipt Date: 20160413
  Transmission Date: 20160815
  Serious: Yes (Disabling)
  Sender: FDA-Public Use
  Company Number: FR-SA-2016SA018408

PATIENT
  Age: 46 Year
  Sex: Female

DRUGS (9)
  1. CAMPATH [Suspect]
     Active Substance: ALEMTUZUMAB
     Indication: MANTLE CELL LYMPHOMA
     Dosage: ROUTE: INTRAVENOUS ROUTE OR BY SUBCUTANEOUS ROUTE
     Route: 065
     Dates: start: 20150820, end: 20151019
  2. ZELITREX [Concomitant]
     Active Substance: VALACYCLOVIR HYDROCHLORIDE
     Indication: HERPES VIRUS INFECTION
  3. CAMPATH [Suspect]
     Active Substance: ALEMTUZUMAB
     Indication: NEOPLASM PROGRESSION
     Dosage: ROUTE: INTRAVENOUS ROUTE OR BY SUBCUTANEOUS ROUTE
     Route: 065
     Dates: start: 20150820, end: 20151019
  4. LUTERAN [Concomitant]
     Active Substance: CHLORMADINONE ACETATE
     Indication: CONTRACEPTION
  5. CAMPATH [Suspect]
     Active Substance: ALEMTUZUMAB
     Indication: MANTLE CELL LYMPHOMA
     Dosage: ROUTE: INTRAVENOUS ROUTE OR BY SUBCUTANEOUS ROUTE
     Route: 065
     Dates: start: 2015, end: 20151228
  6. BACTRIM [Concomitant]
     Active Substance: SULFAMETHOXAZOLE\TRIMETHOPRIM
     Indication: ANTIFUNGAL PROPHYLAXIS
     Dosage: (800) 1TB, 3 TIMES A WEEK
  7. ZYLORIC [Concomitant]
     Active Substance: ALLOPURINOL
     Indication: HYPERURICAEMIA
  8. CAMPATH [Suspect]
     Active Substance: ALEMTUZUMAB
     Indication: NEOPLASM PROGRESSION
     Dosage: ROUTE: INTRAVENOUS ROUTE OR BY SUBCUTANEOUS ROUTE
     Route: 065
     Dates: start: 2015, end: 20151228
  9. CORTANCYL [Concomitant]
     Active Substance: PREDNISONE

REACTIONS (4)
  - Pyrexia [Recovered/Resolved]
  - Injection site reaction [Recovered/Resolved]
  - Chills [Recovered/Resolved]
  - Drug ineffective [Unknown]
